FAERS Safety Report 4534741-2 (Version None)
Quarter: 2004Q4

REPORT INFORMATION
  Report Type: 
  Country: None (occurrence: None)
  Receive Date: 20041222
  Receipt Date: 20040106
  Transmission Date: 20050328
  Serious: No
  Sender: FDA-Public Use
  Company Number: US-BRISTOL-MYERS SQUIBB COMPANY-12469839

PATIENT
  Age: 59 Year
  Sex: Female

DRUGS (3)
  1. PRAVACHOL [Suspect]
     Indication: BLOOD CHOLESTEROL
  2. ACTONEL [Suspect]
     Indication: OSTEOPOROSIS
     Dates: start: 20030114
  3. LIPITOR [Suspect]
     Route: 048

REACTIONS (1)
  - ALOPECIA [None]
